FAERS Safety Report 5141437-5 (Version None)
Quarter: 2006Q4

REPORT INFORMATION
  Report Type: 
  Country: None (occurrence: None)
  Receive Date: 20061101
  Receipt Date: 20061019
  Transmission Date: 20070319
  Serious: Yes (Hospitalization)
  Sender: FDA-Public Use
  Company Number: US-JNJFOC-20061005146

PATIENT
  Sex: Male
  Weight: 83.92 kg

DRUGS (11)
  1. FENTANYL TRANSDERMAL SYSTEM [Suspect]
     Indication: ARTHRALGIA
     Route: 062
  2. WARFARIN SODIUM [Concomitant]
     Indication: ANTICOAGULANT THERAPY
     Route: 048
  3. ASPIRIN [Concomitant]
     Indication: ANTICOAGULANT THERAPY
     Route: 048
  4. ATENOLOL [Concomitant]
     Indication: CARDIAC DISORDER
     Route: 048
  5. NORVASC [Concomitant]
     Indication: CARDIAC DISORDER
     Route: 048
  6. VYTORIN [Concomitant]
     Indication: BLOOD CHOLESTEROL INCREASED
     Dosage: 10/80 DAILY
     Route: 048
  7. EFFEXOR [Concomitant]
     Route: 048
  8. FLOMAX [Concomitant]
     Indication: PROPHYLAXIS
     Route: 048
  9. FUROSEMIDE [Concomitant]
     Indication: DIURETIC THERAPY
     Route: 048
  10. KLOR-CON M20 [Concomitant]
     Indication: BLOOD POTASSIUM
     Route: 048
  11. GABAPENTIN [Concomitant]
     Indication: MUSCLE RELAXANT THERAPY
     Route: 048

REACTIONS (6)
  - ANAEMIA [None]
  - APPLICATION SITE ERYTHEMA [None]
  - INTESTINAL POLYP [None]
  - MALAISE [None]
  - OXYGEN SATURATION DECREASED [None]
  - PNEUMONIA [None]
